FAERS Safety Report 20984490 (Version 1)
Quarter: 2022Q2

REPORT INFORMATION
  Report Type: Report from Study
  Country: AU (occurrence: AU)
  Receive Date: 20220621
  Receipt Date: 20220621
  Transmission Date: 20220721
  Serious: Yes (Other)
  Sender: FDA-Public Use
  Company Number: AU-ABBVIE-22K-008-4435748-00

PATIENT
  Sex: Male

DRUGS (3)
  1. VENETOCLAX [Suspect]
     Active Substance: VENETOCLAX
     Indication: Chronic lymphocytic leukaemia
     Route: 048
     Dates: start: 20140301, end: 20171101
  2. IBRUTINIB [Concomitant]
     Active Substance: IBRUTINIB
     Indication: Product used for unknown indication
     Dates: start: 20180101, end: 20210101
  3. PIRTOBRUTINIB [Concomitant]
     Active Substance: PIRTOBRUTINIB
     Indication: Product used for unknown indication
     Dates: start: 20210129, end: 20220401

REACTIONS (4)
  - Portal hypertension [Unknown]
  - Chronic lymphocytic leukaemia refractory [Unknown]
  - Chronic lymphocytic leukaemia [Unknown]
  - Lymphadenopathy [Unknown]
